FAERS Safety Report 8310890-8 (Version None)
Quarter: 2012Q2

REPORT INFORMATION
  Report Type: 
  Country: None (occurrence: None)
  Receive Date: 20120425
  Receipt Date: 20120416
  Transmission Date: 20120825
  Serious: Yes (Hospitalization)
  Sender: FDA-Public Use
  Company Number: US-BIOGENIDEC-2010BI038778

PATIENT
  Age: 55 Year
  Sex: Female
  Weight: 75 kg

DRUGS (4)
  1. TYSABRI [Suspect]
     Indication: MULTIPLE SCLEROSIS
     Route: 042
     Dates: start: 20100430
  2. TYLENOL (CAPLET) [Concomitant]
     Indication: PREMEDICATION
  3. IV NAUSEA MEDICATION [Concomitant]
     Indication: PREMEDICATION
  4. BENADRYL [Concomitant]
     Indication: PREMEDICATION

REACTIONS (7)
  - ABASIA [None]
  - MIGRAINE [None]
  - HYPOAESTHESIA [None]
  - INFLUENZA [None]
  - MUSCULAR WEAKNESS [None]
  - BALANCE DISORDER [None]
  - POOR VENOUS ACCESS [None]
